FAERS Safety Report 11886749 (Version 1)
Quarter: 2016Q1

REPORT INFORMATION
  Report Type: Spontaneous
  Country: US (occurrence: US)
  Receive Date: 20160104
  Receipt Date: 20160104
  Transmission Date: 20160526
  Serious: No
  Sender: FDA-Public Use
  Company Number: US-PFIZER INC-2015446094

PATIENT
  Age: 33 Year
  Sex: Female
  Weight: 60.78 kg

DRUGS (1)
  1. PROPANOLOL HCL [Suspect]
     Active Substance: PROPRANOLOL HYDROCHLORIDE
     Indication: NERVOUSNESS
     Dosage: 10 MG, TABLET, ORALLY, ONE (PARTICULAR TIME)
     Route: 048

REACTIONS (2)
  - Product use issue [Unknown]
  - Tremor [Unknown]
